FAERS Safety Report 7105705-X (Version None)
Quarter: 2010Q4

REPORT INFORMATION
  Report Type: 
  Country: None (occurrence: None)
  Receive Date: 20101116
  Receipt Date: 20101103
  Transmission Date: 20110411
  Serious: Yes (Hospitalization)
  Sender: FDA-Public Use
  Company Number: PHHY2010FR74896

PATIENT
  Sex: Female

DRUGS (1)
  1. EXJADE [Suspect]
     Indication: IRON OVERLOAD
     Dosage: 1000 MG, DAILY
     Route: 048
     Dates: start: 20090901

REACTIONS (6)
  - ARTHRITIS BACTERIAL [None]
  - GENERAL PHYSICAL HEALTH DETERIORATION [None]
  - JOINT SWELLING [None]
  - PYREXIA [None]
  - STAPHYLOCOCCAL BACTERAEMIA [None]
  - THROMBOPHLEBITIS SEPTIC [None]
